FAERS Safety Report 8097125-9 (Version None)
Quarter: 2012Q1

REPORT INFORMATION
  Report Type: 
  Country: None (occurrence: None)
  Receive Date: 20120129
  Receipt Date: 20111220
  Transmission Date: 20120608
  Serious: No
  Sender: FDA-Public Use
  Company Number: US-ABBOTT-11P-163-0876455-00

PATIENT
  Sex: Female

DRUGS (16)
  1. KLONOPIN [Concomitant]
     Indication: DEPRESSION
  2. VENTOLIN [Concomitant]
     Indication: ASTHMA
  3. GENERIC ALLERGY MEDICATION [Concomitant]
     Indication: SEASONAL ALLERGY
  4. ROBINUL [Concomitant]
     Indication: PRODUCT USED FOR UNKNOWN INDICATION
     Dates: start: 20110701
  5. TRAMADOL HCL [Concomitant]
     Indication: ENDOMETRIOSIS
     Dosage: UP TO 4 TIMES A DAY
  6. PHENERGAN [Concomitant]
     Indication: NAUSEA
  7. PEPCID [Concomitant]
     Indication: PRODUCT USED FOR UNKNOWN INDICATION
  8. ROBINUL [Concomitant]
  9. HUMIRA [Suspect]
     Indication: CROHN'S DISEASE
     Dates: start: 20110811
  10. ACETAMINOPHEN [Concomitant]
     Indication: PRODUCT USED FOR UNKNOWN INDICATION
  11. MOTRIN [Concomitant]
     Indication: PRODUCT USED FOR UNKNOWN INDICATION
  12. KLONOPIN [Concomitant]
     Indication: ANXIETY
  13. WELLBUTRIN [Concomitant]
     Indication: DEPRESSION
  14. MIRENA [Concomitant]
     Indication: CONTRACEPTION
     Route: 015
  15. IMODIUM [Concomitant]
     Indication: PRODUCT USED FOR UNKNOWN INDICATION
  16. STOOL SOFTENER [Concomitant]
     Indication: PRODUCT USED FOR UNKNOWN INDICATION

REACTIONS (2)
  - BIOPSY VAGINA [None]
  - HEPATITIS C VIRUS TEST POSITIVE [None]
